FAERS Safety Report 7481683-9 (Version None)
Quarter: 2011Q2

REPORT INFORMATION
  Report Type: 
  Country: None (occurrence: None)
  Receive Date: 20110516
  Receipt Date: 20110510
  Transmission Date: 20111010
  Serious: Yes (Other)
  Sender: FDA-Public Use
  Company Number: GR-ROCHE-776834

PATIENT
  Sex: Female
  Weight: 55 kg

DRUGS (1)
  1. BONIVA [Suspect]
     Indication: OSTEOPOROSIS
     Dosage: STOP DATE: 2011
     Route: 048
     Dates: start: 20060101

REACTIONS (2)
  - HYPOGEUSIA [None]
  - HYPOSMIA [None]
